FAERS Safety Report 7200694 (Version 10)
Quarter: 2012Q4

REPORT INFORMATION
  Report Type: 
  Country: CA (occurrence: CA)
  Receive Date: 20091204
  Receipt Date: 20121102
  Transmission Date: 20130627
  Serious: Yes (Death, Hospitalization, Other)
  Sender: FDA-Public Use
  Company Number: PHHY2009CA19626

PATIENT
  Sex: Male

DRUGS (3)
  1. SANDOSTATIN LAR [Suspect]
     Indication: ACROMEGALY
     Dosage: 30 mg, TIW
     Route: 030
     Dates: start: 19990901
  2. SANDOSTATIN LAR [Suspect]
     Dosage: 30 mg, QMO
     Route: 030
  3. SANDOSTATIN LAR [Suspect]
     Dosage: 30 mg, every 3 weeks
     Route: 030

REACTIONS (17)
  - Death [Fatal]
  - Hip fracture [Unknown]
  - Upper limb fracture [Unknown]
  - Pelvic fracture [Unknown]
  - Fall [Unknown]
  - Cerebrovascular accident [Unknown]
  - Haemodialysis complication [Unknown]
  - Blood pressure diastolic decreased [Unknown]
  - Terminal state [Unknown]
  - Asthenia [Unknown]
  - Abasia [Unknown]
  - Blood pressure systolic increased [Unknown]
  - Blood pressure increased [Unknown]
  - Injection site pain [Recovered/Resolved]
  - Heart rate decreased [Unknown]
  - Vomiting [Recovered/Resolved]
  - Injection site discomfort [Recovered/Resolved]
